FAERS Safety Report 8233770-5 (Version None)
Quarter: 2012Q1

REPORT INFORMATION
  Report Type: 
  Country: None (occurrence: None)
  Receive Date: 20120326
  Receipt Date: 20120315
  Transmission Date: 20120608
  Serious: Yes (Life-Threatening, Hospitalization)
  Sender: FDA-Public Use
  Company Number: CH-JNJFOC-20120308421

PATIENT
  Age: 68 Year
  Sex: Male

DRUGS (3)
  1. PREDNISONE TAB [Suspect]
     Indication: POLYARTERITIS NODOSA
     Route: 048
     Dates: start: 20110201, end: 20120201
  2. AZATHIOPRINE SODIUM [Suspect]
     Indication: POLYARTERITIS NODOSA
     Route: 048
     Dates: start: 20110201, end: 20120201
  3. REMICADE [Suspect]
     Indication: POLYARTERITIS NODOSA
     Route: 042
     Dates: start: 20111001, end: 20120124

REACTIONS (3)
  - RENAL FAILURE [None]
  - DISSEMINATED TUBERCULOSIS [None]
  - COMA [None]
